FAERS Safety Report 13838508 (Version 1)
Quarter: 2017Q3

REPORT INFORMATION
  Report Type: Report from Study
  Country: US (occurrence: US)
  Receive Date: 20170807
  Receipt Date: 20170807
  Transmission Date: 20171127
  Serious: No
  Sender: FDA-Public Use
  Company Number: US-AMGEN-USASL2017116390

PATIENT
  Age: 39 Year
  Sex: Female

DRUGS (1)
  1. ENBREL [Suspect]
     Active Substance: ETANERCEPT
     Indication: ANKYLOSING SPONDYLITIS
     Dosage: 50 MG, QWK
     Route: 065
     Dates: end: 20170703

REACTIONS (5)
  - Pain [Unknown]
  - Injection site discolouration [Unknown]
  - Pyrexia [Recovered/Resolved]
  - Influenza like illness [Unknown]
  - Injection site warmth [Unknown]

NARRATIVE: CASE EVENT DATE: 201707
